FAERS Safety Report 21933854 (Version 2)
Quarter: 2023Q2

REPORT INFORMATION
  Report Type: Report from Study
  Country: US (occurrence: US)
  Receive Date: 20230201
  Receipt Date: 20230515
  Transmission Date: 20230722
  Serious: Yes (Other)
  Sender: FDA-Public Use
  Company Number: US-ABBVIE-4250242

PATIENT
  Age: 51 Year
  Sex: Female

DRUGS (3)
  1. SKYRIZI [Suspect]
     Active Substance: RISANKIZUMAB-RZAA
     Indication: Psoriasis
     Dosage: WEEK ZERO, FORM STRENGTH: 150 MILLIGRAM
     Route: 058
     Dates: start: 202211, end: 202211
  2. SKYRIZI [Suspect]
     Active Substance: RISANKIZUMAB-RZAA
     Dosage: WEEK FOUR, FORM STRENGTH: 150 MILLIGRAM
     Route: 058
     Dates: start: 202212, end: 202212
  3. SKYRIZI [Suspect]
     Active Substance: RISANKIZUMAB-RZAA
     Dosage: EVERY 12 WEEKS THEREAFTER, FORM STRENGTH: 150 MILLIGRAM
     Route: 058
     Dates: start: 20230228

REACTIONS (7)
  - Hysterectomy [Unknown]
  - Hyperhidrosis [Unknown]
  - Psoriasis [Not Recovered/Not Resolved]
  - Dysuria [Recovering/Resolving]
  - Infection [Unknown]
  - Nasopharyngitis [Recovering/Resolving]
  - Influenza like illness [Recovering/Resolving]

NARRATIVE: CASE EVENT DATE: 20230301
